FAERS Safety Report 4698036-9 (Version None)
Quarter: 2005Q2

REPORT INFORMATION
  Report Type: 
  Country: None (occurrence: None)
  Receive Date: 20050621
  Receipt Date: 20050609
  Transmission Date: 20051028
  Serious: Yes (Other)
  Sender: FDA-Public Use
  Company Number: HQWYE106314MAR05

PATIENT
  Age: 73 Year
  Sex: Male

DRUGS (1)
  1. TAZOCIN (PIPERACILLIN/TAZOBACTAM, INJECTION) [Suspect]
     Indication: PYELONEPHRITIS
     Dosage: 5 G DAILY, INTRAVENOUS DRIP
     Route: 041
     Dates: start: 20040706, end: 20040708

REACTIONS (2)
  - CONDITION AGGRAVATED [None]
  - LIVER DISORDER [None]
